FAERS Safety Report 4947865-2 (Version None)
Quarter: 2006Q1

REPORT INFORMATION
  Report Type: 
  Country: None (occurrence: None)
  Receive Date: 20060320
  Receipt Date: 20060308
  Transmission Date: 20060701
  Serious: Yes (Hospitalization, Other)
  Sender: FDA-Public Use
  Company Number: US-AMGEN-US172022

PATIENT
  Age: 80 Year
  Sex: Male
  Weight: 69.5 kg

DRUGS (13)
  1. ARANESP [Suspect]
     Indication: ANAEMIA
     Route: 058
     Dates: start: 20060213
  2. COUMADIN [Concomitant]
  3. NORVASC [Concomitant]
  4. IMDUR [Concomitant]
  5. ASPIRIN [Concomitant]
  6. LOPRESSOR [Concomitant]
  7. COLACE [Concomitant]
  8. ZOCOR [Concomitant]
  9. FLOMAX [Concomitant]
  10. POTASSIUM CHLORIDE [Concomitant]
  11. ATACAND [Concomitant]
  12. HYDROCHLOROTHIAZIDE [Concomitant]
  13. PRIMAXIN [Concomitant]

REACTIONS (3)
  - BRADYCARDIA [None]
  - LOCALISED INFECTION [None]
  - VENTRICULAR EXTRASYSTOLES [None]
